FAERS Safety Report 8594813-2 (Version None)
Quarter: 2012Q3

REPORT INFORMATION
  Report Type: 
  Country: None (occurrence: None)
  Receive Date: 20120801
  Receipt Date: 20120716
  Transmission Date: 20120928
  Serious: Yes (Hospitalization)
  Sender: FDA-Public Use
  Company Number: 2012000186

PATIENT
  Age: 80 Year
  Sex: Female

DRUGS (7)
  1. ACEON [Suspect]
     Indication: HYPERTENSION
     Dosage: 4 MG, QD, 8 MG, QD, ORAL, 4 MG, QD, ORAL, 8 MG, QD, ORAL, 12 MG, QD, ORAL, 4 MG, QD, ORAL, 2 MG, QD,
     Route: 048
     Dates: start: 20080101
  2. ACEON [Suspect]
     Indication: HYPERTENSION
     Dosage: 4 MG, QD, 8 MG, QD, ORAL, 4 MG, QD, ORAL, 8 MG, QD, ORAL, 12 MG, QD, ORAL, 4 MG, QD, ORAL, 2 MG, QD,
     Route: 048
     Dates: start: 20080101
  3. ACEON [Suspect]
     Indication: HYPERTENSION
     Dosage: 4 MG, QD, 8 MG, QD, ORAL, 4 MG, QD, ORAL, 8 MG, QD, ORAL, 12 MG, QD, ORAL, 4 MG, QD, ORAL, 2 MG, QD,
     Route: 048
     Dates: start: 20120101
  4. AMLODIPINE [Concomitant]
  5. ATENOLOL [Concomitant]
  6. WARFARIN SODIUM [Concomitant]
  7. HYDROCHLOROTHIAZIDE [Concomitant]

REACTIONS (10)
  - ABDOMINAL DISTENSION [None]
  - ATRIAL FIBRILLATION [None]
  - CONDITION AGGRAVATED [None]
  - EARLY SATIETY [None]
  - NAUSEA [None]
  - ANAL PRURITUS [None]
  - FLATULENCE [None]
  - EMOTIONAL DISTRESS [None]
  - DERMATITIS [None]
  - SKIN IRRITATION [None]
